FAERS Safety Report 24559841 (Version 1)
Quarter: 2024Q4

REPORT INFORMATION
  Report Type: Spontaneous
  Country: TR (occurrence: TR)
  Receive Date: 20241029
  Receipt Date: 20241029
  Transmission Date: 20250115
  Serious: Yes (Hospitalization, Other)
  Sender: Steriscience PTE
  Company Number: TR-STERISCIENCE B.V.-2024-ST-001739

PATIENT
  Age: 17 Year
  Sex: Male

DRUGS (2)
  1. METOPROLOL [Suspect]
     Active Substance: METOPROLOL
     Indication: Myocarditis
     Dosage: HAD BEEN RECEIVING FOR ABOUT 5?MONTHS
     Route: 065
  2. ASPIRIN [Suspect]
     Active Substance: ASPIRIN
     Indication: Myocarditis
     Dosage: HAD BEEN RECEIVING FOR ABOUT 5?MONTHS
     Route: 065

REACTIONS (2)
  - Prinzmetal angina [None]
  - Off label use [Unknown]
